FAERS Safety Report 9664898 (Version 1)
Quarter: 2013Q4

REPORT INFORMATION
  Report Type: Spontaneous
  Country: JP (occurrence: JP)
  Receive Date: 20131101
  Receipt Date: 20131101
  Transmission Date: 20140711
  Serious: Yes (Hospitalization)
  Sender: FDA-Public Use
  Company Number: JP-GLAXOSMITHKLINE-B0938186A

PATIENT
  Age: 76 Year
  Sex: Male

DRUGS (4)
  1. AVOLVE [Suspect]
     Indication: BENIGN PROSTATIC HYPERPLASIA
     Dosage: .5MG PER DAY
     Route: 048
     Dates: start: 20120619
  2. FLIVAS [Concomitant]
     Indication: BENIGN PROSTATIC HYPERPLASIA
     Route: 048
     Dates: start: 20130627
  3. SOLETON [Concomitant]
     Indication: SPINAL OSTEOARTHRITIS
     Dosage: 80MG THREE TIMES PER DAY
     Route: 048
     Dates: start: 20130919
  4. MYONAL [Concomitant]
     Indication: SPINAL OSTEOARTHRITIS
     Dosage: 50MG THREE TIMES PER DAY
     Route: 048
     Dates: start: 20130919

REACTIONS (1)
  - Cerebellar infarction [Unknown]
